FAERS Safety Report 21598003 (Version 1)
Quarter: 2022Q4

REPORT INFORMATION
  Report Type: Report from Study
  Country: US (occurrence: US)
  Receive Date: 20221115
  Receipt Date: 20221115
  Transmission Date: 20230112
  Serious: No
  Sender: FDA-Public Use
  Company Number: US-ABBVIE-22K-163-4396424-00

PATIENT
  Sex: Female

DRUGS (1)
  1. IMBRUVICA [Suspect]
     Active Substance: IBRUTINIB
     Indication: Chronic lymphocytic leukaemia
     Route: 048

REACTIONS (5)
  - Fatigue [Recovered/Resolved]
  - Rash vesicular [Recovered/Resolved]
  - Stomatitis [Recovered/Resolved]
  - Diarrhoea [Recovered/Resolved]
  - Gastrointestinal disorder [Unknown]
